FAERS Safety Report 7475193-2 (Version None)
Quarter: 2011Q2

REPORT INFORMATION
  Report Type: 
  Country: None (occurrence: None)
  Receive Date: 20110505
  Receipt Date: 20110216
  Transmission Date: 20111010
  Serious: Yes (Other)
  Sender: FDA-Public Use
  Company Number: AU-ACCORD-008178

PATIENT
  Age: 58 Year
  Sex: Female

DRUGS (3)
  1. PACLITAXEL [Suspect]
     Indication: ENDOMETRIAL CANCER
  2. CARBOPLATIN [Suspect]
     Indication: ENDOMETRIAL CANCER
  3. CORTICOSTEROID (CORTICOSTEROID) [Suspect]
     Indication: PREMEDICATION

REACTIONS (1)
  - PYOMYOSITIS [None]
